FAERS Safety Report 8597532-1 (Version None)
Quarter: 2012Q3

REPORT INFORMATION
  Report Type: 
  Country: None (occurrence: None)
  Receive Date: 20120816
  Receipt Date: 20120813
  Transmission Date: 20120928
  Serious: No
  Sender: FDA-Public Use
  Company Number: US-BAYER-2012-083428

PATIENT
  Age: 67 Year
  Sex: Female
  Weight: 86 kg

DRUGS (13)
  1. ALPRAZOLAM [Concomitant]
     Dosage: UNK
  2. VITAMIN B-12 [Concomitant]
     Dosage: UNK
  3. POTASSIUM CHLORIDE [Concomitant]
  4. ATENOLOL [Concomitant]
     Dosage: UNK
  5. LOVASTATIN [Concomitant]
  6. VITAMIN D [Concomitant]
     Dosage: UNK
  7. LECITHIN [Concomitant]
     Dosage: UNK
  8. ZINC SULFATE [Concomitant]
     Dosage: UNK
  9. ALEVE (CAPLET) [Suspect]
     Indication: ANALGESIC THERAPY
     Dosage: 2 DF, QD
     Route: 048
     Dates: start: 20040101
  10. MAGNESIUM [Concomitant]
     Dosage: UNK
  11. ASCORBIC ACID [Concomitant]
     Dosage: UNK
  12. VITAMIN E [Concomitant]
  13. LISINOPRIL AND HYDROCHLOROTHIAZIDE [Concomitant]
     Dosage: UNK

REACTIONS (1)
  - NO ADVERSE EVENT [None]
